FAERS Safety Report 5896755-X (Version None)
Quarter: 2008Q3

REPORT INFORMATION
  Report Type: 
  Country: None (occurrence: None)
  Receive Date: 20080924
  Receipt Date: 20071205
  Transmission Date: 20090109
  Serious: Yes (Other)
  Sender: FDA-Public Use
  Company Number: US-ASTRAZENECA-2007UW27761

PATIENT
  Age: 45 Year
  Sex: Male
  Weight: 88.5 kg

DRUGS (6)
  1. SEROQUEL [Suspect]
     Indication: INSOMNIA
     Route: 048
  2. SEROQUEL [Suspect]
     Route: 048
  3. LIPITOR [Concomitant]
  4. SYNTHROID [Concomitant]
  5. XANAX [Concomitant]
  6. INDERAL [Concomitant]

REACTIONS (6)
  - DYSARTHRIA [None]
  - MULTIPLE DRUG OVERDOSE [None]
  - NEUROLEPTIC MALIGNANT SYNDROME [None]
  - PALPITATIONS [None]
  - PYREXIA [None]
  - SOMNOLENCE [None]
